FAERS Safety Report 10957175 (Version 1)
Quarter: 2015Q1

REPORT INFORMATION
  Report Type: Spontaneous
  Country: IT (occurrence: IT)
  Receive Date: 20150326
  Receipt Date: 20150326
  Transmission Date: 20150721
  Serious: Yes (Other)
  Sender: FDA-Public Use
  Company Number: IT-ASTRAZENECA-2015SE25394

PATIENT
  Sex: Female

DRUGS (1)
  1. BUPIVACAINE [Suspect]
     Active Substance: BUPIVACAINE
     Dosage: NON-AZ PRODUCT
     Route: 065

REACTIONS (1)
  - Drug effect increased [Unknown]

NARRATIVE: CASE EVENT DATE: 20150312
